FAERS Safety Report 6158013-8 (Version None)
Quarter: 2009Q2

REPORT INFORMATION
  Report Type: 
  Country: None (occurrence: None)
  Receive Date: 20090417
  Receipt Date: 20090408
  Transmission Date: 20091009
  Serious: Yes (Other)
  Sender: FDA-Public Use
  Company Number: US-PFIZER INC-2006015949

PATIENT
  Sex: Female

DRUGS (21)
  1. PROVERA [Suspect]
     Indication: HORMONE REPLACEMENT THERAPY
     Dosage: UNK
     Route: 048
     Dates: start: 19910201, end: 19990101
  2. PROVERA [Suspect]
     Indication: MENOPAUSE
  3. OGEN [Suspect]
     Indication: HORMONE REPLACEMENT THERAPY
     Dosage: UNK
     Route: 048
     Dates: start: 19971001, end: 19980101
  4. OGEN [Suspect]
     Indication: MENOPAUSE
  5. PREMARIN [Suspect]
     Indication: HORMONE REPLACEMENT THERAPY
     Dosage: UNK
     Dates: start: 19900501, end: 19970301
  6. PREMARIN [Suspect]
     Indication: MENOPAUSE
  7. ESTRACE [Suspect]
     Indication: HORMONE REPLACEMENT THERAPY
     Dosage: UNK
     Dates: start: 19950901, end: 19980501
  8. ESTRACE [Suspect]
     Indication: MENOPAUSE
  9. ESTRADIOL [Suspect]
     Indication: HORMONE REPLACEMENT THERAPY
     Dosage: UNK
     Dates: start: 19980601, end: 19981201
  10. ESTRADIOL [Suspect]
     Indication: MENOPAUSE
  11. CYCRIN [Suspect]
     Indication: HORMONE REPLACEMENT THERAPY
     Dosage: UNK
     Dates: start: 19971001, end: 19981001
  12. CYCRIN [Suspect]
     Indication: MENOPAUSE
  13. PREMPRO [Suspect]
     Indication: HORMONE REPLACEMENT THERAPY
     Dosage: UNK
     Dates: start: 19960401, end: 19980101
  14. PREMPRO [Suspect]
     Indication: MENOPAUSE
  15. ESTRADERM [Suspect]
     Indication: HORMONE REPLACEMENT THERAPY
     Dosage: UNK
     Dates: start: 19910201, end: 19940901
  16. ESTRADERM [Suspect]
     Indication: MENOPAUSE
  17. ESTRATEST [Suspect]
     Indication: HORMONE REPLACEMENT THERAPY
     Dosage: UNK
     Dates: start: 19960401, end: 19960701
  18. ESTRATEST [Suspect]
     Indication: MENOPAUSE
  19. ESTRATAB [Suspect]
     Indication: HORMONE REPLACEMENT THERAPY
     Dosage: UNK
     Dates: start: 19950301, end: 19950801
  20. ESTRATAB [Suspect]
     Indication: MENOPAUSE
  21. HUMALOG [Concomitant]
     Indication: DIABETES MELLITUS
     Dosage: UNK
     Dates: start: 19850101

REACTIONS (1)
  - BREAST CANCER [None]
